FAERS Safety Report 26058204 (Version 1)
Quarter: 2025Q4

REPORT INFORMATION
  Report Type: Spontaneous
  Country: US (occurrence: US)
  Receive Date: 20251118
  Receipt Date: 20251118
  Transmission Date: 20260117
  Serious: No
  Sender: ALEXION PHARMACEUTICALS
  Company Number: US-AstraZeneca-CH-00991335A

PATIENT

DRUGS (3)
  1. TEZSPIRE [Suspect]
     Active Substance: TEZEPELUMAB-EKKO
     Dosage: UNK
     Route: 065
  2. TEZSPIRE [Suspect]
     Active Substance: TEZEPELUMAB-EKKO
  3. Alopecia [Concomitant]
     Route: 065

REACTIONS (7)
  - Injection site swelling [Unknown]
  - Alopecia [Unknown]
  - Back pain [Unknown]
  - Vision blurred [Unknown]
  - Arthralgia [Unknown]
  - Tooth abscess [Unknown]
  - Swelling face [Unknown]
